FAERS Safety Report 13743403 (Version 1)
Quarter: 2017Q3

REPORT INFORMATION
  Report Type: Spontaneous
  Country: US (occurrence: US)
  Receive Date: 20170711
  Receipt Date: 20170711
  Transmission Date: 20171127
  Serious: Yes (Hospitalization)
  Sender: FDA-Public Use
  Company Number: US-ELI_LILLY_AND_COMPANY-US201706013679

PATIENT
  Age: 73 Year
  Sex: Female

DRUGS (7)
  1. HUMALOG [Suspect]
     Active Substance: INSULIN LISPRO
     Dosage: UNK, SLIDING SCALE DAILY
     Route: 058
     Dates: start: 2009
  2. HUMALOG [Suspect]
     Active Substance: INSULIN LISPRO
     Dosage: UNK, SLIDING SCALE DAILY
     Route: 058
     Dates: start: 2009
  3. HUMALOG [Suspect]
     Active Substance: INSULIN LISPRO
     Dosage: UNK, SLIDING SCALE DAILY
     Route: 058
     Dates: start: 2009
  4. LANTUS [Concomitant]
     Active Substance: INSULIN GLARGINE
     Indication: TYPE 1 DIABETES MELLITUS
     Dosage: 15 U, DAILY
  5. HUMALOG [Suspect]
     Active Substance: INSULIN LISPRO
     Dosage: 5 U, WITH MEALS
     Route: 058
     Dates: start: 2009
  6. HUMALOG [Suspect]
     Active Substance: INSULIN LISPRO
     Dosage: 5 U, WITH MEALS
     Route: 058
     Dates: start: 2009
  7. HUMALOG [Suspect]
     Active Substance: INSULIN LISPRO
     Indication: TYPE 1 DIABETES MELLITUS
     Dosage: 5 U, WITH MEALS
     Route: 058
     Dates: start: 2009

REACTIONS (3)
  - Blood glucose increased [Recovered/Resolved]
  - Incorrect dose administered [Unknown]
  - Ketoacidosis [Recovered/Resolved]

NARRATIVE: CASE EVENT DATE: 20170622
